FAERS Safety Report 23749816 (Version 1)
Quarter: 2024Q2

REPORT INFORMATION
  Report Type: Spontaneous
  Country: US (occurrence: US)
  Receive Date: 20240417
  Receipt Date: 20240417
  Transmission Date: 20240716
  Serious: Yes (Other)
  Sender: FDA-Public Use
  Company Number: US-BRISTOL-MYERS SQUIBB COMPANY-2024-056624

PATIENT
  Age: 51 Year
  Sex: Female

DRUGS (2)
  1. ORENCIA [Suspect]
     Active Substance: ABATACEPT
     Indication: Rheumatoid arthritis
     Dosage: FREQUENCY: EVERY 7 DAYS
     Route: 058
     Dates: start: 202104
  2. ORENCIA [Suspect]
     Active Substance: ABATACEPT
     Indication: Systemic lupus erythematosus

REACTIONS (2)
  - Systemic lupus erythematosus [Unknown]
  - Rheumatoid arthritis [Unknown]
